FAERS Safety Report 8605918-1 (Version None)
Quarter: 2012Q3

REPORT INFORMATION
  Report Type: 
  Country: None (occurrence: None)
  Receive Date: 20120820
  Receipt Date: 20120814
  Transmission Date: 20120928
  Serious: Yes (Hospitalization, Other)
  Sender: FDA-Public Use
  Company Number: US-GILEAD-2012-0055190

PATIENT
  Sex: Male

DRUGS (3)
  1. LETAIRIS [Suspect]
     Indication: PULMONARY HYPERTENSION
     Dosage: 10 MG, UNK
     Route: 048
     Dates: start: 20120316, end: 20120717
  2. LETAIRIS [Suspect]
     Indication: CARDIAC FAILURE CONGESTIVE
  3. LETAIRIS [Suspect]
     Indication: PULMONARY ARTERIAL HYPERTENSION

REACTIONS (7)
  - PNEUMONIA [None]
  - CARDIAC FAILURE CONGESTIVE [None]
  - RESPIRATORY FAILURE [None]
  - RENAL FAILURE [None]
  - SYNCOPE [None]
  - DEMENTIA ALZHEIMER'S TYPE [None]
  - FLUID RETENTION [None]
